FAERS Safety Report 18067567 (Version 2)
Quarter: 2020Q3

REPORT INFORMATION
  Report Type: Spontaneous
  Country: BR (occurrence: BR)
  Receive Date: 20200724
  Receipt Date: 20200730
  Transmission Date: 20201103
  Serious: Yes (Other)
  Sender: FDA-Public Use
  Company Number: BR-ALLERGAN-2027321US

PATIENT
  Sex: Female

DRUGS (3)
  1. LUMIGAN [Suspect]
     Active Substance: BIMATOPROST
     Indication: GLAUCOMA
     Dosage: UNK UNK, BID
     Route: 047
  2. PONDERA [Concomitant]
     Active Substance: PAROXETINE HYDROCHLORIDE
     Indication: DEPRESSION
     Dosage: LOW DOSES
  3. FRONTAL [Concomitant]
     Active Substance: ALPRAZOLAM
     Indication: DEPRESSION
     Dosage: LOW DOSES

REACTIONS (7)
  - Inappropriate schedule of product administration [Unknown]
  - Malaise [Unknown]
  - Incorrect dose administered [Unknown]
  - Cataract [Unknown]
  - Product delivery mechanism issue [Unknown]
  - Dizziness [Unknown]
  - Vision blurred [Unknown]
